FAERS Safety Report 4365729-2 (Version None)
Quarter: 2004Q2

REPORT INFORMATION
  Report Type: 
  Country: None (occurrence: None)
  Receive Date: 20040520
  Receipt Date: 20040511
  Transmission Date: 20050107
  Serious: Yes (Other)
  Sender: FDA-Public Use
  Company Number: 2004032134

PATIENT
  Sex: Male

DRUGS (3)
  1. CARDURA [Suspect]
     Indication: BENIGN PROSTATIC HYPERPLASIA
     Dosage: 4 MG, (4 MG, 1 IN 1 D), ORAL
     Route: 048
     Dates: start: 20040201
  2. DIAZEPAM [Concomitant]
  3. LEVOMEPROMAZINE [Concomitant]

REACTIONS (1)
  - SURGERY [None]
